FAERS Safety Report 5897488-6 (Version None)
Quarter: 2008Q3

REPORT INFORMATION
  Report Type: 
  Country: None (occurrence: None)
  Receive Date: 20080925
  Receipt Date: 20080923
  Transmission Date: 20090109
  Serious: Yes (Hospitalization)
  Sender: FDA-Public Use
  Company Number: DE-BRISTOL-MYERS SQUIBB COMPANY-14345557

PATIENT
  Age: 63 Year
  Sex: Female
  Weight: 84 kg

DRUGS (5)
  1. CYCLOPHOSPHAMIDE [Suspect]
     Indication: BREAST CANCER
     Dosage: 1 DOSAGE FORM=1140 (UNITS NOT GIVEN). THERAPY STARTED ON 26JUN08
     Route: 042
     Dates: start: 20080812, end: 20080812
  2. TAXOL [Suspect]
     Indication: BREAST CANCER
     Dosage: THERAPY ONGOING
     Route: 042
     Dates: start: 20080901
  3. EPIRUBICIN [Suspect]
     Indication: BREAST CANCER
     Dosage: THERAPY STARTED ON 26JUN08.
     Route: 042
     Dates: start: 20080812, end: 20080812
  4. XELODA [Suspect]
     Indication: BREAST CANCER
     Dosage: TAKEN ONCE DAILY FOR DAY 1 - DAY14(14 DAYS) IN EVERY 3 WEEKS.
     Route: 048
     Dates: start: 20080901
  5. NEORECORMON [Concomitant]
     Route: 058
     Dates: start: 20080626

REACTIONS (1)
  - DIARRHOEA [None]
